FAERS Safety Report 13584944 (Version 3)
Quarter: 2017Q2

REPORT INFORMATION
  Report Type: Spontaneous
  Country: JP (occurrence: JP)
  Receive Date: 20170526
  Receipt Date: 20170627
  Transmission Date: 20170830
  Serious: Yes (Hospitalization, Congenital Anomaly)
  Sender: FDA-Public Use
  Company Number: JP-ASTELLAS-2017JP009119

PATIENT
  Age: 0 Year
  Sex: Female
  Weight: 2 kg

DRUGS (3)
  1. PROGRAF [Suspect]
     Active Substance: TACROLIMUS\TACROLIMUS ANHYDROUS
     Indication: EXPOSURE DURING BREAST FEEDING
     Route: 063
     Dates: start: 20170421
  2. PROGRAF [Suspect]
     Active Substance: TACROLIMUS\TACROLIMUS ANHYDROUS
     Indication: FOETAL EXPOSURE DURING PREGNANCY
     Route: 064
     Dates: end: 20170413
  3. HEPAFLUSH [Concomitant]
     Active Substance: HEPARIN SODIUM
     Indication: EXPOSURE DURING BREAST FEEDING
     Dosage: 1000/TIME
     Route: 063
     Dates: start: 20170414, end: 20170414

REACTIONS (3)
  - Low birth weight baby [Recovered/Resolved]
  - Foetal heart rate deceleration abnormality [Recovered/Resolved]
  - Exposure during breast feeding [Unknown]

NARRATIVE: CASE EVENT DATE: 20170409
